FAERS Safety Report 11580791 (Version 5)
Quarter: 2016Q1

REPORT INFORMATION
  Report Type: Report from Study
  Country: CA (occurrence: CA)
  Receive Date: 20151001
  Receipt Date: 20160122
  Transmission Date: 20160525
  Serious: Yes (Other)
  Sender: FDA-Public Use
  Company Number: CA-ROCHE-1106904

PATIENT
  Age: 63 Year
  Sex: Female
  Weight: 111.1 kg

DRUGS (9)
  1. METHYLPREDNISOLONE. [Concomitant]
     Active Substance: METHYLPREDNISOLONE
     Indication: PREMEDICATION
     Route: 042
     Dates: start: 20120821, end: 20151019
  2. RITUXAN [Suspect]
     Active Substance: RITUXIMAB
     Indication: RHEUMATOID ARTHRITIS
     Route: 042
     Dates: start: 20120821, end: 20151019
  3. LEUCOVORIN. [Concomitant]
     Active Substance: LEUCOVORIN
  4. METHOTREXATE [Concomitant]
     Active Substance: METHOTREXATE
  5. SOLU-CORTEF [Concomitant]
     Active Substance: HYDROCORTISONE SODIUM SUCCINATE
     Route: 042
     Dates: start: 20120905
  6. CODEINE [Concomitant]
     Active Substance: CODEINE
  7. PREDNISONE. [Concomitant]
     Active Substance: PREDNISONE
     Dosage: 15 MG TAPERED TO 10 MG
     Route: 065
  8. DIPHENHYDRAMINE HCL [Concomitant]
     Active Substance: DIPHENHYDRAMINE HYDROCHLORIDE
     Indication: PREMEDICATION
     Route: 048
     Dates: start: 20120821, end: 20151019
  9. SOLU-CORTEF [Concomitant]
     Active Substance: HYDROCORTISONE SODIUM SUCCINATE
     Route: 042
     Dates: start: 20151005

REACTIONS (14)
  - Nasopharyngitis [Not Recovered/Not Resolved]
  - Diplopia [Recovered/Resolved]
  - Dilatation atrial [Not Recovered/Not Resolved]
  - Malaise [Recovered/Resolved]
  - Dengue fever [Recovered/Resolved]
  - Headache [Recovered/Resolved]
  - Drug ineffective [Unknown]
  - Pneumonia [Recovered/Resolved]
  - Rheumatoid arthritis [Unknown]
  - Lower respiratory tract infection [Not Recovered/Not Resolved]
  - Muscle spasms [Unknown]
  - Infusion related reaction [Recovered/Resolved]
  - Cardiac flutter [Unknown]
  - Drug effect decreased [Unknown]

NARRATIVE: CASE EVENT DATE: 20120821
